FAERS Safety Report 12224083 (Version 2)
Quarter: 2016Q3

REPORT INFORMATION
  Report Type: Report from Study
  Country: CA (occurrence: CA)
  Receive Date: 20160330
  Receipt Date: 20160711
  Transmission Date: 20161109
  Serious: Yes (Hospitalization, Other)
  Sender: FDA-Public Use
  Company Number: PHHY2016CA041166

PATIENT
  Age: 25 Year
  Sex: Female

DRUGS (4)
  1. ALEMTUZUMAB [Concomitant]
     Active Substance: ALEMTUZUMAB
     Indication: PRODUCT USED FOR UNKNOWN INDICATION
     Dosage: UNK
     Route: 065
     Dates: start: 201407
  2. GILENYA [Suspect]
     Active Substance: FINGOLIMOD HYDROCHLORIDE
     Indication: RELAPSING-REMITTING MULTIPLE SCLEROSIS
     Dosage: UNK
     Route: 048
     Dates: start: 201307, end: 201405
  3. SEPTRA [Suspect]
     Active Substance: SULFAMETHOXAZOLE\TRIMETHOPRIM
     Indication: ANTIFUNGAL PROPHYLAXIS
     Dosage: UNK
     Route: 065
  4. ANAKINRA [Suspect]
     Active Substance: ANAKINRA
     Indication: PRODUCT USED FOR UNKNOWN INDICATION
     Route: 065

REACTIONS (24)
  - Myalgia [Unknown]
  - Lymphopenia [Unknown]
  - Still^s disease adult onset [Recovering/Resolving]
  - Urinary tract infection enterococcal [Unknown]
  - Escherichia urinary tract infection [Unknown]
  - Arthralgia [Unknown]
  - Pleuritic pain [Unknown]
  - Bone marrow failure [Unknown]
  - Hepatocellular injury [Unknown]
  - Urinary incontinence [Unknown]
  - Oesophageal candidiasis [Unknown]
  - Pyrexia [Unknown]
  - Bone disorder [Unknown]
  - Drug-induced liver injury [Recovering/Resolving]
  - Hepatic necrosis [Unknown]
  - Central nervous system lesion [Unknown]
  - Rash maculo-papular [Unknown]
  - Multiple sclerosis [Unknown]
  - Escherichia sepsis [Unknown]
  - Urine odour abnormal [Unknown]
  - Oropharyngeal pain [Unknown]
  - Pericarditis [Unknown]
  - Pleural effusion [Unknown]
  - Dysuria [Unknown]

NARRATIVE: CASE EVENT DATE: 201405
